FAERS Safety Report 8232194-4 (Version None)
Quarter: 2012Q1

REPORT INFORMATION
  Report Type: 
  Country: None (occurrence: None)
  Receive Date: 20120323
  Receipt Date: 20120315
  Transmission Date: 20120608
  Serious: Yes (Hospitalization)
  Sender: FDA-Public Use
  Company Number: JP-NOVOPROD-346311

PATIENT
  Age: 47 Year
  Sex: Male
  Weight: 54 kg

DRUGS (3)
  1. GLIMICRON [Suspect]
     Indication: PRODUCT USED FOR UNKNOWN INDICATION
     Dosage: 10 MG, QD
     Route: 048
     Dates: start: 20070601
  2. ALOSENN                            /00476901/ [Concomitant]
     Dosage: 0.5 G, QD
     Route: 048
     Dates: start: 20111221, end: 20120229
  3. VICTOZA [Suspect]
     Indication: TYPE 2 DIABETES MELLITUS
     Dosage: 0.9 MG, QD
     Route: 058
     Dates: start: 20110530

REACTIONS (2)
  - IRON DEFICIENCY ANAEMIA [None]
  - MUSCLE SPASMS [None]
